FAERS Safety Report 14770486 (Version 3)
Quarter: 2018Q2

REPORT INFORMATION
  Report Type: Report from Study
  Country: US (occurrence: US)
  Receive Date: 20180417
  Receipt Date: 20180501
  Transmission Date: 20180711
  Serious: Yes (Hospitalization, Other)
  Sender: FDA-Public Use
  Company Number: US-PFIZER INC-2018128799

PATIENT
  Age: 65 Year
  Sex: Female

DRUGS (2)
  1. SUTENT [Suspect]
     Active Substance: SUNITINIB MALATE
     Dosage: 25 MG, CYCLIC (2 WEEKS ON, 1 WEEK OFF)
     Route: 048
     Dates: start: 20180329, end: 20180410
  2. SUTENT [Suspect]
     Active Substance: SUNITINIB MALATE
     Indication: RENAL CELL CARCINOMA
     Dosage: 37.5 MG, CYCLIC [2 WEEKS ON, 1 WEEK OFF]
     Route: 048
     Dates: start: 20180322, end: 20180324

REACTIONS (5)
  - Haematocrit decreased [Unknown]
  - Pneumonia [Unknown]
  - White blood cell count increased [Unknown]
  - Disorientation [Unknown]
  - Gait inability [Unknown]

NARRATIVE: CASE EVENT DATE: 201803
